FAERS Safety Report 7948044-7 (Version None)
Quarter: 2011Q4

REPORT INFORMATION
  Report Type: 
  Country: None (occurrence: None)
  Receive Date: 20111130
  Receipt Date: 20111123
  Transmission Date: 20120403
  Serious: Yes (Hospitalization)
  Sender: FDA-Public Use
  Company Number: SE-JNJFOC-20111110512

PATIENT
  Sex: Male

DRUGS (2)
  1. GALANTAMINE HYDROBROMIDE [Suspect]
     Route: 065
  2. GALANTAMINE HYDROBROMIDE [Suspect]
     Indication: PARKINSONISM
     Route: 065

REACTIONS (5)
  - ATRIOVENTRICULAR BLOCK COMPLETE [None]
  - HALLUCINATION [None]
  - CONVULSION [None]
  - PULSE ABSENT [None]
  - RESTLESSNESS [None]
